FAERS Safety Report 8964892 (Version 2)
Quarter: 2013Q1

REPORT INFORMATION
  Report Type: Report from Study
  Country: JP (occurrence: JP)
  Receive Date: 20121213
  Receipt Date: 20130206
  Transmission Date: 20140127
  Serious: Yes (Hospitalization)
  Sender: FDA-Public Use
  Company Number: JP-ROCHE-1164802

PATIENT
  Age: 60 Year
  Sex: Female
  Weight: 46 kg

DRUGS (13)
  1. OMALIZUMAB [Suspect]
     Indication: ASTHMA
     Route: 058
     Dates: start: 20100209
  2. OMALIZUMAB [Suspect]
     Route: 058
     Dates: start: 20100511
  3. OMALIZUMAB [Suspect]
     Route: 058
     Dates: start: 20100608
  4. OMALIZUMAB [Suspect]
     Route: 058
     Dates: start: 20101126, end: 20110107
  5. HOKUNALIN [Concomitant]
     Route: 065
     Dates: start: 20070117, end: 20110107
  6. ONON [Concomitant]
     Route: 065
     Dates: start: 20070124, end: 20110107
  7. THEOPHYLLIN [Concomitant]
     Route: 065
     Dates: start: 20071114, end: 20110107
  8. PREDONINE [Concomitant]
     Route: 065
     Dates: start: 20090224, end: 20110107
  9. PREDONINE [Concomitant]
     Route: 065
     Dates: end: 20111107
  10. BLOPRESS [Concomitant]
     Route: 065
     Dates: start: 20090708, end: 20110107
  11. ADALAT CR [Concomitant]
     Route: 065
     Dates: start: 20090708, end: 20110107
  12. ACINON [Concomitant]
     Route: 065
     Dates: start: 20090224, end: 20110107
  13. ADOAIR [Concomitant]
     Route: 065
     Dates: start: 20090224, end: 20110107

REACTIONS (2)
  - Bronchitis [Recovered/Resolved]
  - Asthma [Recovering/Resolving]
